FAERS Safety Report 8331687-9 (Version None)
Quarter: 2012Q2

REPORT INFORMATION
  Report Type: 
  Country: None (occurrence: None)
  Receive Date: 20120502
  Receipt Date: 20110406
  Transmission Date: 20120825
  Serious: No
  Sender: FDA-Public Use
  Company Number: US-ASTRAZENECA-2011SE19566

PATIENT
  Sex: Male

DRUGS (2)
  1. ENTOCORT EC [Suspect]
     Route: 048
     Dates: start: 20110301
  2. ENTOCORT EC [Suspect]
     Indication: CROHN'S DISEASE
     Route: 048
     Dates: start: 20110101, end: 20110301

REACTIONS (4)
  - HYPERTENSION [None]
  - INSOMNIA [None]
  - ANXIETY [None]
  - FEELING JITTERY [None]
